FAERS Safety Report 4986770-2 (Version None)
Quarter: 2006Q2

REPORT INFORMATION
  Report Type: 
  Country: None (occurrence: None)
  Receive Date: 20060428
  Receipt Date: 20051031
  Transmission Date: 20061013
  Serious: Yes (Hospitalization, Other)
  Sender: FDA-Public Use
  Company Number: NO-MERCK-0511NOR00006

PATIENT
  Age: 74 Year
  Sex: Female

DRUGS (7)
  1. SIMVASTATIN [Concomitant]
     Indication: HYPERCHOLESTEROLAEMIA
     Route: 048
     Dates: start: 20011101
  2. ZOPICLONE [Concomitant]
     Route: 065
  3. VIOXX [Suspect]
     Indication: OSTEOARTHRITIS
     Route: 048
     Dates: start: 20010702, end: 20010801
  4. VIOXX [Suspect]
     Route: 048
     Dates: start: 20020227, end: 20020701
  5. VIOXX [Suspect]
     Route: 048
     Dates: start: 20021216, end: 20040101
  6. ASPIRIN AND MAGNESIUM OXIDE [Concomitant]
     Route: 048
  7. NAPROXEN [Concomitant]
     Route: 048
     Dates: start: 20010807

REACTIONS (5)
  - ANGINA PECTORIS [None]
  - DRUG INEFFECTIVE [None]
  - MYOCARDIAL INFARCTION [None]
  - SYSTEMIC LUPUS ERYTHEMATOSUS [None]
  - VESTIBULAR NEURONITIS [None]
